FAERS Safety Report 21064787 (Version 2)
Quarter: 2022Q3

REPORT INFORMATION
  Report Type: Spontaneous
  Country: IN (occurrence: IN)
  Receive Date: 20220711
  Receipt Date: 20220929
  Transmission Date: 20221027
  Serious: Yes (Death, Other)
  Sender: FDA-Public Use
  Company Number: IN-PFIZER INC-202200705246

PATIENT
  Age: 47 Year
  Sex: Female

DRUGS (1)
  1. SUTENT [Suspect]
     Active Substance: SUNITINIB MALATE
     Dosage: 25 MG, 1X/DAY(4 WEEKS ON +THEN 2 WEEKS OFF)
     Route: 048
     Dates: start: 20220402

REACTIONS (15)
  - Death [Fatal]
  - Blood thyroid stimulating hormone abnormal [Unknown]
  - Blood creatine abnormal [Unknown]
  - Blood alkaline phosphatase abnormal [Unknown]
  - Haemoglobin decreased [Unknown]
  - Protein total abnormal [Unknown]
  - Blood albumin abnormal [Unknown]
  - Diarrhoea [Unknown]
  - Mouth ulceration [Unknown]
  - Glycosylated haemoglobin increased [Unknown]
  - Globulins decreased [Unknown]
  - Nausea [Unknown]
  - Vomiting [Unknown]
  - Weight decreased [Unknown]
  - Constipation [Unknown]
